FAERS Safety Report 23392464 (Version 1)
Quarter: 2024Q1

REPORT INFORMATION
  Report Type: Spontaneous
  Country: US (occurrence: None)
  Receive Date: 20240111
  Receipt Date: 20240111
  Transmission Date: 20240409
  Serious: Yes (Hospitalization)
  Sender: FDA-Public Use
  Company Number: None

PATIENT
  Sex: Female
  Weight: 100.5 kg

DRUGS (3)
  1. BENDAMUSTINE HYDROCHLORIDE [Suspect]
     Active Substance: BENDAMUSTINE HYDROCHLORIDE
     Dates: end: 20120531
  2. LENALIDOMIDE [Suspect]
     Active Substance: LENALIDOMIDE
     Dates: end: 20130103
  3. RITUXIMAB [Suspect]
     Active Substance: RITUXIMAB

REACTIONS (3)
  - Laboratory test abnormal [None]
  - Arthralgia [None]
  - Acute myeloid leukaemia [None]

NARRATIVE: CASE EVENT DATE: 20231213
